FAERS Safety Report 25498701 (Version 1)
Quarter: 2025Q3

REPORT INFORMATION
  Report Type: Report from Study
  Country: IL (occurrence: IL)
  Receive Date: 20250701
  Receipt Date: 20250701
  Transmission Date: 20251021
  Serious: Yes (Death, Other)
  Sender: RANBAXY
  Company Number: IL-SUN PHARMACEUTICAL INDUSTRIES LTD-2025R1-513997

PATIENT
  Age: 71 Year
  Sex: Female

DRUGS (4)
  1. ACYCLOVIR [Suspect]
     Active Substance: ACYCLOVIR
     Indication: Herpes simplex encephalitis
     Route: 065
  2. DEXAMETHASONE [Suspect]
     Active Substance: DEXAMETHASONE
     Indication: Malignant melanoma
     Route: 065
  3. AFATINIB [Suspect]
     Active Substance: AFATINIB
     Indication: Malignant melanoma
     Route: 065
  4. IRESSA [Suspect]
     Active Substance: GEFITINIB
     Indication: Malignant melanoma
     Route: 065

REACTIONS (1)
  - Condition aggravated [Fatal]
